FAERS Safety Report 9055483 (Version 2)
Quarter: 2013Q1

REPORT INFORMATION
  Report Type: Spontaneous
  Country: US (occurrence: US)
  Receive Date: 20130206
  Receipt Date: 20130220
  Transmission Date: 20140127
  Serious: No
  Sender: FDA-Public Use
  Company Number: US-B.I. PHARMACEUTICALS,INC./RIDGEFIELD-2013-BI-00778BP

PATIENT
  Age: 50 None
  Sex: Female
  Weight: 41 kg

DRUGS (11)
  1. SPIRIVA [Suspect]
     Indication: CHRONIC OBSTRUCTIVE PULMONARY DISEASE
     Dosage: 18 MCG
     Route: 055
     Dates: start: 2011
  2. CELEBREX [Concomitant]
     Indication: ARTHRITIS
  3. GABAPENTIN [Concomitant]
     Indication: COMPLEX REGIONAL PAIN SYNDROME
  4. ZYRTEC [Concomitant]
     Indication: SEASONAL ALLERGY
  5. VALIUM [Concomitant]
     Indication: ANXIETY
  6. SYMBICORT [Concomitant]
     Indication: CHRONIC OBSTRUCTIVE PULMONARY DISEASE
  7. PARAFON FORTE [Concomitant]
     Indication: MUSCLE RELAXANT THERAPY
  8. TESSALON PERLES [Concomitant]
     Indication: COUGH
  9. LEXAPRO [Concomitant]
     Indication: DEPRESSION
  10. TRAZADONE [Concomitant]
     Indication: SLEEP DISORDER
  11. SINGULAIR [Concomitant]
     Indication: SEASONAL ALLERGY

REACTIONS (2)
  - Dyspnoea [Not Recovered/Not Resolved]
  - Product quality issue [Not Recovered/Not Resolved]
